FAERS Safety Report 8624617-3 (Version None)
Quarter: 2012Q3

REPORT INFORMATION
  Report Type: 
  Country: None (occurrence: None)
  Receive Date: 20120827
  Receipt Date: 20120821
  Transmission Date: 20120928
  Serious: Yes (Hospitalization, Other)
  Sender: FDA-Public Use
  Company Number: IT-PFIZER INC-2012203086

PATIENT
  Age: 48 Year
  Sex: Male

DRUGS (3)
  1. ATORVASTATIN CALCIUM [Suspect]
     Indication: MYOCARDIAL ISCHAEMIA
     Dosage: 80 MG, DAILY
     Route: 048
     Dates: start: 20030101
  2. ACETAMINOPHEN [Suspect]
     Indication: PYREXIA
     Dosage: 1000 UNIT DOSE DAILY
     Route: 048
     Dates: start: 20120722, end: 20120724
  3. PLAVIX [Suspect]
     Indication: MYOCARDIAL ISCHAEMIA
     Dosage: 75 MG, DAILY
     Route: 048
     Dates: start: 20120101, end: 20120724

REACTIONS (2)
  - MYOCARDIAL INFARCTION [None]
  - HEPATITIS ACUTE [None]
